FAERS Safety Report 7357304-2 (Version None)
Quarter: 2011Q1

REPORT INFORMATION
  Report Type: 
  Country: None (occurrence: None)
  Receive Date: 20110311
  Receipt Date: 20110311
  Transmission Date: 20110831
  Serious: No
  Sender: FDA-Public Use
  Company Number: None

PATIENT
  Age: 38 Year
  Sex: Male
  Weight: 63.5036 kg

DRUGS (1)
  1. LEVAQUIN [Suspect]
     Indication: SINUSITIS
     Dosage: 500 MG QD PO
     Route: 048
     Dates: start: 20110220, end: 20110227

REACTIONS (3)
  - TENDON RUPTURE [None]
  - MUSCULOSKELETAL DISORDER [None]
  - TENDONITIS [None]
